FAERS Safety Report 22036872 (Version 1)
Quarter: 2023Q1

REPORT INFORMATION
  Report Type: Spontaneous
  Country: US (occurrence: US)
  Receive Date: 20230225
  Receipt Date: 20230225
  Transmission Date: 20230418
  Serious: Yes (Hospitalization, Other)
  Sender: FDA-Public Use
  Company Number: None

PATIENT
  Age: 37 Year
  Sex: Male
  Weight: 41 kg

DRUGS (4)
  1. LIDOCAINE HYDROCHLORIDE [Suspect]
     Active Substance: LIDOCAINE HYDROCHLORIDE
     Indication: Tooth extraction
  2. LIDOCAINE HYDROCHLORIDE [Suspect]
     Active Substance: LIDOCAINE HYDROCHLORIDE
  3. ARTICAINE [Concomitant]
     Active Substance: ARTICAINE
     Indication: Tooth extraction
  4. EPINEPHRINE [Concomitant]
     Active Substance: EPINEPHRINE
     Indication: Tooth extraction

REACTIONS (1)
  - Electrocardiogram ST segment elevation [Recovered/Resolved]
